FAERS Safety Report 25043907 (Version 3)
Quarter: 2025Q2

REPORT INFORMATION
  Report Type: Spontaneous
  Country: JP (occurrence: JP)
  Receive Date: 20250306
  Receipt Date: 20250401
  Transmission Date: 20250717
  Serious: Yes (Hospitalization)
  Sender: MERCK SHARP AND DOHME
  Company Number: JP-009507513-2260758

PATIENT
  Age: 8 Decade

DRUGS (3)
  1. KEYTRUDA [Suspect]
     Active Substance: PEMBROLIZUMAB
     Indication: Bile duct cancer
     Route: 041
  2. GEMCITABINE [Concomitant]
     Active Substance: GEMCITABINE
  3. CISPLATIN [Concomitant]
     Active Substance: CISPLATIN

REACTIONS (4)
  - Immune-mediated encephalitis [Recovering/Resolving]
  - Altered state of consciousness [Recovering/Resolving]
  - Seizure [Recovering/Resolving]
  - Cholangitis [Unknown]

NARRATIVE: CASE EVENT DATE: 20250201
